FAERS Safety Report 5306832-X (Version None)
Quarter: 2007Q2

REPORT INFORMATION
  Report Type: 
  Country: None (occurrence: None)
  Receive Date: 20070425
  Receipt Date: 20070416
  Transmission Date: 20071010
  Serious: Yes (Death, Life-Threatening, Hospitalization, Other)
  Sender: FDA-Public Use
  Company Number: GB-JNJFOC-20070403309

PATIENT
  Sex: Female
  Weight: 45 kg

DRUGS (14)
  1. REMICADE [Suspect]
     Indication: RHEUMATOID ARTHRITIS
     Route: 042
  2. METHOTREXATE [Concomitant]
  3. LEFLUNOMIDE [Concomitant]
  4. PREDNISOLONE [Concomitant]
  5. CALCICHEW [Concomitant]
  6. CO-AMILOFRUSE [Concomitant]
  7. COCODAMOL [Concomitant]
  8. COMBIVENT [Concomitant]
  9. DOMPERIDONE [Concomitant]
  10. E45 CREAM [Concomitant]
  11. FERROUS SUFATE [Concomitant]
  12. FLUDROCORTISONE ACETATE [Concomitant]
  13. HYDROXYCHLOROQUINE SULFATE [Concomitant]
  14. SERTRALINE [Concomitant]

REACTIONS (1)
  - CEREBROVASCULAR ACCIDENT [None]
